FAERS Safety Report 21247674 (Version 1)
Quarter: 2022Q3

REPORT INFORMATION
  Report Type: Spontaneous
  Country: CA (occurrence: CA)
  Receive Date: 20220824
  Receipt Date: 20220824
  Transmission Date: 20221026
  Serious: Yes (Other)
  Sender: FDA-Public Use
  Company Number: None

PATIENT
  Age: 40 Year
  Sex: Female

DRUGS (2)
  1. MONOFERRIC [Suspect]
     Active Substance: FERRIC DERISOMALTOSE
     Indication: Iron deficiency anaemia
     Dosage: FREQUENCY: ONCE
     Route: 050
  2. RABEPRAZOLE [Concomitant]
     Active Substance: RABEPRAZOLE

REACTIONS (4)
  - Hyperhidrosis [Recovered/Resolved]
  - Hypoacusis [Recovered/Resolved]
  - Malaise [Recovered/Resolved]
  - Presyncope [Recovered/Resolved]
